FAERS Safety Report 15888877 (Version 1)
Quarter: 2019Q1

REPORT INFORMATION
  Report Type: Report from Study
  Country: US (occurrence: US)
  Receive Date: 20190130
  Receipt Date: 20190130
  Transmission Date: 20190417
  Serious: No
  Sender: FDA-Public Use
  Company Number: PHEH2019US004315

PATIENT
  Sex: Female

DRUGS (1)
  1. GLATOPA [Suspect]
     Active Substance: GLATIRAMER ACETATE
     Indication: MULTIPLE SCLEROSIS
     Dosage: 40 MG, TIW, ROTATES INJECTION SITE
     Route: 058

REACTIONS (5)
  - Injection site haemorrhage [Unknown]
  - Injection site erythema [Unknown]
  - Device issue [Unknown]
  - Injection site reaction [Unknown]
  - Injection site pain [Unknown]
